FAERS Safety Report 24034508 (Version 1)
Quarter: 2024Q3

REPORT INFORMATION
  Report Type: Spontaneous
  Country: CH (occurrence: CH)
  Receive Date: 20240701
  Receipt Date: 20240701
  Transmission Date: 20241016
  Serious: Yes (Death, Hospitalization)
  Sender: SEBELA
  Company Number: CH-SEBELA IRELAND LIMITED-2024SEB00047

PATIENT
  Age: 43 Year
  Sex: Male

DRUGS (2)
  1. AZATHIOPRINE [Suspect]
     Active Substance: AZATHIOPRINE
     Indication: Colitis ulcerative
  2. MESALAMINE [Concomitant]
     Active Substance: MESALAMINE
     Indication: Colitis ulcerative

REACTIONS (4)
  - Haemophagocytic lymphohistiocytosis [Fatal]
  - Epstein-Barr viraemia [Fatal]
  - Multiple organ dysfunction syndrome [Fatal]
  - Fungal infection [Fatal]
